FAERS Safety Report 17147064 (Version 1)
Quarter: 2019Q4

REPORT INFORMATION
  Report Type: Spontaneous
  Country: FR (occurrence: FR)
  Receive Date: 20191212
  Receipt Date: 20191212
  Transmission Date: 20200122
  Serious: Yes (Other)
  Sender: FDA-Public Use
  Company Number: NVSC2019FR064365

PATIENT
  Age: 71 Year
  Sex: Male
  Weight: 84.2 kg

DRUGS (2)
  1. COUMADINE [Interacting]
     Active Substance: WARFARIN SODIUM
     Indication: PULMONARY EMBOLISM
     Dosage: 25 MG, QID
     Route: 048
  2. CARBAMAZEPINE. [Suspect]
     Active Substance: CARBAMAZEPINE
     Indication: BIPOLAR DISORDER
     Dosage: 600 MG, QD
     Route: 048
     Dates: start: 20190704, end: 20190814

REACTIONS (2)
  - Drug interaction [Recovered/Resolved]
  - International normalised ratio decreased [Recovered/Resolved]

NARRATIVE: CASE EVENT DATE: 20190730
